FAERS Safety Report 7542935-7 (Version None)
Quarter: 2011Q2

REPORT INFORMATION
  Report Type: 
  Country: None (occurrence: None)
  Receive Date: 20110613
  Receipt Date: 20110601
  Transmission Date: 20111010
  Serious: Yes (Hospitalization, Other)
  Sender: FDA-Public Use
  Company Number: PHHY2010US83647

PATIENT
  Sex: Male
  Weight: 175 kg

DRUGS (4)
  1. FOLIC ACID [Concomitant]
     Dosage: 400 UG, UNK
  2. GLEEVEC [Suspect]
     Dosage: 200 MG, DAILY
     Route: 048
  3. LISINOPRIL [Concomitant]
     Dosage: 2.5 MG, UNK
  4. GLEEVEC [Suspect]
     Indication: MALIGNANT SOFT TISSUE NEOPLASM
     Dosage: 400 MG, DAILY
     Route: 048
     Dates: start: 20101102

REACTIONS (18)
  - BLOOD GLUCOSE INCREASED [None]
  - CREATININE RENAL CLEARANCE DECREASED [None]
  - BACK PAIN [None]
  - INSOMNIA [None]
  - ERUCTATION [None]
  - SWELLING FACE [None]
  - BLOOD CREATININE INCREASED [None]
  - NAUSEA [None]
  - UPPER RESPIRATORY TRACT INFECTION [None]
  - COUGH [None]
  - MALAISE [None]
  - ANAEMIA [None]
  - FACE OEDEMA [None]
  - PLEURAL EFFUSION [None]
  - DYSPEPSIA [None]
  - FATIGUE [None]
  - NEPHROLITHIASIS [None]
  - PERIORBITAL OEDEMA [None]
